FAERS Safety Report 6693022-1 (Version None)
Quarter: 2010Q2

REPORT INFORMATION
  Report Type: 
  Country: None (occurrence: None)
  Receive Date: 20100422
  Receipt Date: 20100406
  Transmission Date: 20101027
  Serious: No
  Sender: FDA-Public Use
  Company Number: US-JNJFOC-20100304564

PATIENT
  Sex: Male
  Weight: 63.5 kg

DRUGS (3)
  1. INVEGA SUSTENNA [Suspect]
     Indication: BIPOLAR I DISORDER
     Route: 030
  2. INVEGA SUSTENNA [Suspect]
     Route: 030
  3. SEROQUEL [Concomitant]
     Indication: BIPOLAR I DISORDER
     Route: 048

REACTIONS (6)
  - EJACULATION FAILURE [None]
  - FEELING ABNORMAL [None]
  - FLAT AFFECT [None]
  - HYPERSOMNIA [None]
  - LETHARGY [None]
  - WEIGHT INCREASED [None]
